FAERS Safety Report 7616067 (Version 3)
Quarter: 2017Q3

REPORT INFORMATION
  Report Type: Spontaneous
  Country: US (occurrence: US)
  Receive Date: 20101004
  Receipt Date: 20170824
  Transmission Date: 20171128
  Serious: No
  Sender: FDA-Public Use
  Company Number: US-ROCHE-729912

PATIENT
  Sex: Female
  Weight: 66.28 kg

DRUGS (6)
  1. HERCEPTIN [Suspect]
     Active Substance: TRASTUZUMAB
     Route: 065
  2. TAXOL [Concomitant]
     Active Substance: PACLITAXEL
     Indication: BREAST CANCER METASTATIC
     Route: 042
  3. XELODA [Concomitant]
     Active Substance: CAPECITABINE
     Indication: BREAST CANCER METASTATIC
     Route: 065
  4. ZOMETA [Concomitant]
     Active Substance: ZOLEDRONIC ACID
  5. HERCEPTIN [Suspect]
     Active Substance: TRASTUZUMAB
     Indication: BREAST CANCER METASTATIC
     Dosage: EARLY 2007
     Route: 042
  6. LAPATINIB [Suspect]
     Active Substance: LAPATINIB
     Indication: BREAST CANCER METASTATIC
     Route: 065

REACTIONS (6)
  - Transaminases increased [Unknown]
  - Erythema [Unknown]
  - Red blood cell count decreased [Not Recovered/Not Resolved]
  - Asthenia [Not Recovered/Not Resolved]
  - Gait disturbance [Not Recovered/Not Resolved]
  - Metastases to central nervous system [Unknown]
